FAERS Safety Report 9443403 (Version 3)
Quarter: 2013Q3

REPORT INFORMATION
  Report Type: Spontaneous
  Country: US (occurrence: None)
  Receive Date: 20130802
  Receipt Date: 20130903
  Transmission Date: 20140515
  Serious: Yes (Other)
  Sender: FDA-Public Use
  Company Number: AUR-APL-2013-06353

PATIENT
  Age: 36 Year
  Sex: Male

DRUGS (2)
  1. LAMOTRIGINE [Suspect]
     Indication: CONVULSION
     Dosage: 1 TABLET MAY BE INCREASED TO 2 TABLETS
     Dates: start: 20130516, end: 20130723
  2. TRAZODONE (TRAZODONE) [Concomitant]

REACTIONS (2)
  - Convulsion [None]
  - Drug ineffective [None]
